FAERS Safety Report 11782683 (Version 1)
Quarter: 2015Q4

REPORT INFORMATION
  Report Type: Report from Study
  Country: US (occurrence: US)
  Receive Date: 20151127
  Receipt Date: 20151127
  Transmission Date: 20160305
  Serious: Yes (Other)
  Sender: FDA-Public Use
  Company Number: US-AMGEN-USASP2015124161

PATIENT
  Age: 65 Year
  Sex: Female

DRUGS (1)
  1. PROLIA [Suspect]
     Active Substance: DENOSUMAB
     Indication: OSTEOPENIA
     Dosage: UNK
     Route: 065

REACTIONS (12)
  - Muscle tone disorder [Unknown]
  - Dialysis [Unknown]
  - Off label use [Unknown]
  - Blood calcium abnormal [Unknown]
  - Pelvic fracture [Recovered/Resolved]
  - Blood phosphorus decreased [Unknown]
  - Blood parathyroid hormone increased [Unknown]
  - Fall [Unknown]
  - Mobility decreased [Unknown]
  - Tooth fracture [Unknown]
  - Back pain [Unknown]
  - Eye disorder [Unknown]

NARRATIVE: CASE EVENT DATE: 201403
